FAERS Safety Report 22354316 (Version 2)
Quarter: 2023Q2

REPORT INFORMATION
  Report Type: Spontaneous
  Country: JP (occurrence: JP)
  Receive Date: 20230523
  Receipt Date: 20230612
  Transmission Date: 20230721
  Serious: Yes (Death, Life-Threatening, Hospitalization, Other)
  Sender: FDA-Public Use
  Company Number: None

PATIENT
  Age: 66 Year
  Sex: Female

DRUGS (3)
  1. PREDNISOLONE [Suspect]
     Active Substance: PREDNISOLONE
     Indication: Acquired epidermolysis bullosa
     Dosage: 6 MILLIGRAM, QD
     Route: 065
  2. PREDNISOLONE [Suspect]
     Active Substance: PREDNISOLONE
     Indication: Lymphangiectasia intestinal
     Dosage: 20 MILLIGRAM, QD
     Route: 065
  3. CELLCEPT [Suspect]
     Active Substance: MYCOPHENOLATE MOFETIL
     Indication: Acquired epidermolysis bullosa
     Dosage: 2 GRAM, QD
     Route: 065

REACTIONS (5)
  - Death [Fatal]
  - Colitis [Recovered/Resolved]
  - Disseminated mycobacterium avium complex infection [Recovered/Resolved]
  - Peritonitis [Recovered/Resolved]
  - Lymphangiectasia intestinal [Unknown]
